FAERS Safety Report 25457302 (Version 1)
Quarter: 2025Q2

REPORT INFORMATION
  Report Type: Spontaneous
  Country: PL (occurrence: PL)
  Receive Date: 20250619
  Receipt Date: 20250619
  Transmission Date: 20250717
  Serious: Yes (Hospitalization, Other)
  Sender: PFIZER
  Company Number: PL-SANDOZ-SDZ2025PL036991

PATIENT
  Age: 66 Year
  Sex: Male

DRUGS (11)
  1. PANTOPRAZOLE [Suspect]
     Active Substance: PANTOPRAZOLE
     Route: 065
  2. ASPIRIN [Suspect]
     Active Substance: ASPIRIN
     Dosage: 75 MG, 1X/DAY
     Route: 065
  3. METFORMIN HYDROCHLORIDE [Suspect]
     Active Substance: METFORMIN HYDROCHLORIDE
     Route: 065
  4. RAMIPRIL [Suspect]
     Active Substance: RAMIPRIL
     Route: 065
  5. PANTOPRAZOLE SODIUM [Suspect]
     Active Substance: PANTOPRAZOLE SODIUM
     Route: 065
  6. BISOPROLOL [Suspect]
     Active Substance: BISOPROLOL
     Dosage: 5 MG, 1X/DAY
     Route: 065
  7. AMLODIPINE\RAMIPRIL [Suspect]
     Active Substance: AMLODIPINE\RAMIPRIL
     Route: 065
  8. GLIMEPIRIDE [Suspect]
     Active Substance: GLIMEPIRIDE
     Dosage: 4 MG, 1X/DAY
     Route: 065
  9. ROSUVASTATIN [Suspect]
     Active Substance: ROSUVASTATIN
     Route: 065
  10. CLOPIDOGREL [Suspect]
     Active Substance: CLOPIDOGREL BISULFATE
     Route: 065
  11. EZETIMIBE [Suspect]
     Active Substance: EZETIMIBE
     Route: 065

REACTIONS (7)
  - Hypotony of eye [Unknown]
  - Hyporeflexia [Unknown]
  - Musculoskeletal stiffness [Unknown]
  - Seizure [Unknown]
  - Muscular weakness [Unknown]
  - Myocardial infarction [Unknown]
  - Asthenia [Unknown]

NARRATIVE: CASE EVENT DATE: 20240701
